FAERS Safety Report 6311160-X (Version None)
Quarter: 2009Q3

REPORT INFORMATION
  Report Type: 
  Country: None (occurrence: None)
  Receive Date: 20090817
  Receipt Date: 20090806
  Transmission Date: 20100115
  Serious: Yes (Hospitalization)
  Sender: FDA-Public Use
  Company Number: GB-AMGEN-US117152

PATIENT
  Sex: Female
  Weight: 31.3 kg

DRUGS (16)
  1. ENBREL [Suspect]
     Indication: JUVENILE ARTHRITIS
     Route: 058
     Dates: start: 20031130, end: 20041116
  2. ENBREL [Suspect]
     Route: 058
  3. CORTICOSTEROIDS [Concomitant]
  4. DOMPERIDONE [Concomitant]
     Route: 048
     Dates: start: 20040901
  5. FOLIC ACID [Concomitant]
     Route: 048
  6. BECLOMETASONE [Concomitant]
     Dosage: DOSE UNSPECIFIED, PRN
     Route: 055
     Dates: start: 20031205
  7. INDOMETHACIN [Concomitant]
     Route: 048
  8. INDOMETHACIN [Concomitant]
     Route: 048
  9. OMEPRAZOLE [Concomitant]
     Route: 048
  10. CALCICHEW [Concomitant]
     Dosage: UNKNOWN
     Route: 048
  11. PARACETAMOL [Concomitant]
  12. SALBUTAMOL [Concomitant]
     Dosage: DOSE UNSPECIFIED, PRN
     Route: 055
     Dates: start: 20031205
  13. METHOTREXATE [Concomitant]
     Dosage: UNKNOWN
  14. METHOTREXATE [Concomitant]
     Route: 058
     Dates: start: 20041109
  15. PREDNISOLONE [Concomitant]
     Dosage: UNKNOWN
     Route: 048
     Dates: end: 20040901
  16. PREDNISOLONE [Concomitant]
     Dosage: 10MG ALTERNATE DAYS
     Route: 048
     Dates: start: 20040901

REACTIONS (4)
  - BACTERIAL PYELONEPHRITIS [None]
  - CONDITION AGGRAVATED [None]
  - ESCHERICHIA INFECTION [None]
  - URINARY TRACT INFECTION [None]
